FAERS Safety Report 9708079 (Version 2)
Quarter: 2013Q4

REPORT INFORMATION
  Report Type: Spontaneous
  Country: US (occurrence: None)
  Receive Date: 20131121
  Receipt Date: 20131203
  Transmission Date: 20140711
  Serious: Yes (Death, Hospitalization)
  Sender: FDA-Public Use
  Company Number: IPC201311-000477

PATIENT
  Age: 29 Year
  Sex: Male

DRUGS (2)
  1. METFORMIN HYDROCHLORIDE [Suspect]
     Dosage: 64-85 G
  2. ETHANOL (ETHANOL) (ETHANOL) [Suspect]

REACTIONS (19)
  - Pancreatitis [None]
  - Toxicity to various agents [None]
  - Lactic acidosis [None]
  - Suicide attempt [None]
  - Intentional overdose [None]
  - Hyperglycaemia [None]
  - Alcohol interaction [None]
  - Unresponsive to stimuli [None]
  - Aspiration [None]
  - Pulseless electrical activity [None]
  - Ventricular tachycardia [None]
  - Blood pressure decreased [None]
  - Coagulopathy [None]
  - Haemodialysis [None]
  - Left ventricular dysfunction [None]
  - Agitation [None]
  - Faecal incontinence [None]
  - Osmolar gap abnormal [None]
  - Aggression [None]
